FAERS Safety Report 25549000 (Version 1)
Quarter: 2025Q3

REPORT INFORMATION
  Report Type: Spontaneous
  Country: US (occurrence: None)
  Receive Date: 20250711
  Receipt Date: 20250711
  Transmission Date: 20251020
  Serious: Yes (Hospitalization)
  Sender: FDA-CTU
  Company Number: None

PATIENT
  Age: 81 Year
  Sex: Female

DRUGS (2)
  1. TERIPARATIDE [Suspect]
     Active Substance: TERIPARATIDE
     Dosage: 20MCG DAILY
  2. NITROFURANTOIN [Suspect]
     Active Substance: NITROFURANTOIN

REACTIONS (4)
  - Urinary tract infection [None]
  - Diarrhoea haemorrhagic [None]
  - Back pain [None]
  - Abdominal pain upper [None]
